FAERS Safety Report 5483447-4 (Version None)
Quarter: 2007Q4

REPORT INFORMATION
  Report Type: 
  Country: None (occurrence: None)
  Receive Date: 20071009
  Receipt Date: 20070921
  Transmission Date: 20080405
  Serious: Yes (Life-Threatening)
  Sender: FDA-Public Use
  Company Number: GXKR2007US08257

PATIENT
  Age: 49 Year
  Sex: Female

DRUGS (3)
  1. VERAPAMIL (NGX)(VERAPAMIL) EXTENDED RELEASE CAPSULES [Suspect]
     Dosage: 5.8 G, ONCE/SINGLE
  2. CAPTOPRIL [Suspect]
     Dosage: 1.5 G, ONCE/SINGLE
  3. GLIBENCLAMIDE (NGX)(GLIBENCLAMIDE) UNKNOWN [Suspect]
     Dosage: 65 MG, ONCE/SINGLE

REACTIONS (18)
  - ABDOMINAL TENDERNESS [None]
  - ACCELERATED IDIOVENTRICULAR RHYTHM [None]
  - BLOOD GLUCOSE INCREASED [None]
  - BRADYCARDIA [None]
  - CARDIAC OUTPUT DECREASED [None]
  - CARDIOTOXICITY [None]
  - GENERAL PHYSICAL HEALTH DETERIORATION [None]
  - GLASGOW COMA SCALE ABNORMAL [None]
  - HYPOGLYCAEMIA [None]
  - HYPOTENSION [None]
  - HYPOTHERMIA [None]
  - METABOLIC ACIDOSIS [None]
  - MULTIPLE DRUG OVERDOSE INTENTIONAL [None]
  - PANCREATITIS ACUTE [None]
  - PULMONARY OEDEMA [None]
  - PUPILLARY LIGHT REFLEX TESTS ABNORMAL [None]
  - PYREXIA [None]
  - RENAL IMPAIRMENT [None]
